FAERS Safety Report 9703919 (Version 1)
Quarter: 2013Q4

REPORT INFORMATION
  Report Type: Spontaneous
  Country: US (occurrence: None)
  Receive Date: 20131121
  Receipt Date: 20131121
  Transmission Date: 20140711
  Serious: No
  Sender: FDA-Public Use
  Company Number: None

PATIENT
  Age: 35 Year
  Sex: Female

DRUGS (1)
  1. AVONEX 30MCG BIOGEN IDEC [Suspect]
     Indication: MULTIPLE SCLEROSIS
     Dosage: 30MCG  WEEKLY  IM
     Route: 030
     Dates: start: 20130201

REACTIONS (7)
  - Hyperhidrosis [None]
  - Pain [None]
  - Dry mouth [None]
  - Influenza like illness [None]
  - Alopecia [None]
  - Weight increased [None]
  - Asthenia [None]
